FAERS Safety Report 6126648-4 (Version None)
Quarter: 2009Q1

REPORT INFORMATION
  Report Type: 
  Country: None (occurrence: None)
  Receive Date: 20090320
  Receipt Date: 20090306
  Transmission Date: 20090719
  Serious: Yes (Death)
  Sender: FDA-Public Use
  Company Number: GB-PFIZER INC-2009173789

PATIENT

DRUGS (11)
  1. SUNITINIB MALATE [Suspect]
     Indication: HEPATIC NEOPLASM MALIGNANT
     Dosage: 37.5 MG, 1X/DAY
     Route: 048
     Dates: start: 20081212
  2. OXYNORM [Concomitant]
     Route: 058
     Dates: start: 20090213, end: 20090214
  3. OMEPRAZOLE [Concomitant]
     Route: 048
     Dates: end: 20090214
  4. KETOROLAC [Concomitant]
     Dosage: UNK
     Route: 030
     Dates: start: 20090101, end: 20090214
  5. DICLOFENAC [Concomitant]
     Route: 048
     Dates: start: 20090210, end: 20090213
  6. LACTULOSE [Concomitant]
     Route: 048
     Dates: end: 20090214
  7. CLOBAZAM [Concomitant]
     Route: 048
     Dates: end: 20090210
  8. GABAPENTIN [Concomitant]
     Route: 048
     Dates: end: 20090214
  9. CO-DANTHRAMER [Concomitant]
     Route: 048
     Dates: end: 20090214
  10. NULYTELY [Concomitant]
     Route: 048
     Dates: end: 20090214
  11. PHENYTOIN [Concomitant]
     Route: 048
     Dates: end: 20090214

REACTIONS (2)
  - DISEASE PROGRESSION [None]
  - HEPATIC NEOPLASM MALIGNANT [None]
